FAERS Safety Report 7794063-3 (Version None)
Quarter: 2011Q4

REPORT INFORMATION
  Report Type: 
  Country: None (occurrence: None)
  Receive Date: 20111004
  Receipt Date: 20110922
  Transmission Date: 20120403
  Serious: Yes (Other)
  Sender: FDA-Public Use
  Company Number: CA-JNJFOC-20110910679

PATIENT
  Sex: Female
  Weight: 83.1 kg

DRUGS (7)
  1. VITAMIN D [Concomitant]
     Route: 065
  2. IMURAN [Concomitant]
     Route: 065
  3. CALCIUM CARBONATE [Concomitant]
     Route: 065
  4. NUVARING [Concomitant]
     Route: 065
  5. ZOPICLONE [Concomitant]
     Route: 065
  6. FISH OIL [Concomitant]
     Route: 065
  7. REMICADE [Suspect]
     Indication: CROHN'S DISEASE
     Dosage: 100MG
     Route: 042
     Dates: start: 20090101

REACTIONS (5)
  - MUSCLE SPASMS [None]
  - DIARRHOEA [None]
  - PSORIASIS [None]
  - FLUSHING [None]
  - ARTHRALGIA [None]
